FAERS Safety Report 18292187 (Version 1)
Quarter: 2020Q3

REPORT INFORMATION
  Report Type: Report from Study
  Country: FR (occurrence: FR)
  Receive Date: 20200922
  Receipt Date: 20200922
  Transmission Date: 20201103
  Serious: Yes (Other)
  Sender: FDA-Public Use
  Company Number: FR-TEVA-2020-FR-1829565

PATIENT
  Age: 55 Year
  Sex: Female

DRUGS (2)
  1. AMOXICILLIN. [Suspect]
     Active Substance: AMOXICILLIN
     Indication: SKIN TEST
     Route: 065
  2. CEFUROXIME. [Suspect]
     Active Substance: CEFUROXIME
     Indication: SKIN TEST
     Route: 065

REACTIONS (4)
  - Therapeutic product cross-reactivity [Unknown]
  - Type I hypersensitivity [Unknown]
  - Angioedema [Unknown]
  - Urticaria [Unknown]
